FAERS Safety Report 6489671-6 (Version None)
Quarter: 2009Q4

REPORT INFORMATION
  Report Type: 
  Country: None (occurrence: None)
  Receive Date: 20091207
  Receipt Date: 20091124
  Transmission Date: 20100525
  Serious: Yes (Other)
  Sender: FDA-Public Use
  Company Number: 2009-03005

PATIENT
  Age: 59 Year
  Sex: Male
  Weight: 62 kg

DRUGS (7)
  1. VELCADE [Suspect]
     Indication: MULTIPLE MYELOMA
     Dosage: 2.2 MG, CYCLIC, INTRAVENOUS
     Route: 042
     Dates: start: 20070605, end: 20070727
  2. ZOMETA [Concomitant]
  3. CLARITIN [Concomitant]
  4. CRAVIT (LEVOFLOXACIN) EYE DROPS [Concomitant]
  5. NIFLAN (PRANOPROFEN) EYE DROPS [Concomitant]
  6. TARIVID OPHTHALMIC (OFLOXACIN) OINTMENT, CREAM [Concomitant]
  7. AMOXICILLIN TRIHYDRATE [Concomitant]

REACTIONS (1)
  - GRANULOMA [None]
